FAERS Safety Report 22160705 (Version 1)
Quarter: 2023Q1

REPORT INFORMATION
  Report Type: Spontaneous
  Country: US (occurrence: US)
  Receive Date: 20230331
  Receipt Date: 20230331
  Transmission Date: 20230418
  Serious: Yes (Other)
  Sender: FDA-Public Use
  Company Number: US-ELI_LILLY_AND_COMPANY-US202303013895

PATIENT
  Sex: Female

DRUGS (1)
  1. TERIPARATIDE [Suspect]
     Active Substance: TERIPARATIDE
     Indication: Osteoporosis
     Dosage: UNK, UNKNOWN
     Route: 065

REACTIONS (1)
  - Osteonecrosis of jaw [Unknown]
